FAERS Safety Report 6222574-0 (Version None)
Quarter: 2009Q2

REPORT INFORMATION
  Report Type: 
  Country: None (occurrence: None)
  Receive Date: 20090611
  Receipt Date: 20090608
  Transmission Date: 20091009
  Serious: No
  Sender: FDA-Public Use
  Company Number: BR-BAYER-200912698LA

PATIENT
  Age: 24 Year
  Sex: Female
  Weight: 55 kg

DRUGS (1)
  1. YASMIN [Suspect]
     Indication: ORAL CONTRACEPTION
     Dosage: 21D/28D
     Route: 048
     Dates: start: 20070101

REACTIONS (3)
  - DYSMENORRHOEA [None]
  - MAMMOPLASTY [None]
  - VAGINAL HAEMORRHAGE [None]
